FAERS Safety Report 9090716 (Version 1)
Quarter: 2013Q1

REPORT INFORMATION
  Report Type: Report from Study
  Country: US (occurrence: US)
  Receive Date: 20130201
  Receipt Date: 20130201
  Transmission Date: 20140127
  Serious: No
  Sender: FDA-Public Use
  Company Number: US-ABBOTT-12P-163-1023576-00

PATIENT
  Age: 48 Year
  Sex: Male

DRUGS (4)
  1. HUMIRA [Suspect]
     Indication: COLITIS ULCERATIVE
     Dosage: LOADING DOSE
     Route: 058
     Dates: start: 20121216, end: 20121216
  2. HUMIRA [Suspect]
     Route: 058
  3. DEPAKOTE [Concomitant]
     Indication: CONVULSION PROPHYLAXIS
  4. ASACOL [Concomitant]
     Indication: COLITIS ULCERATIVE

REACTIONS (2)
  - Injection site mass [Recovered/Resolved]
  - Injection site pain [Recovered/Resolved]
